FAERS Safety Report 6301925-2 (Version None)
Quarter: 2009Q3

REPORT INFORMATION
  Report Type: 
  Country: None (occurrence: None)
  Receive Date: 20090807
  Receipt Date: 20090805
  Transmission Date: 20100115
  Serious: Yes (Hospitalization)
  Sender: FDA-Public Use
  Company Number: ES-AMGEN-UK358898

PATIENT
  Sex: Male

DRUGS (2)
  1. PANITUMUMAB [Suspect]
     Indication: SQUAMOUS CELL CARCINOMA
     Route: 042
     Dates: start: 20090708
  2. PANITUMUMAB - STUDY PROCEDURE [Suspect]
     Indication: SQUAMOUS CELL CARCINOMA

REACTIONS (2)
  - INFLAMMATION [None]
  - MUCOSAL INFLAMMATION [None]
